FAERS Safety Report 7378880-X (Version None)
Quarter: 2011Q1

REPORT INFORMATION
  Report Type: 
  Country: None (occurrence: None)
  Receive Date: 20110328
  Receipt Date: 20110321
  Transmission Date: 20110831
  Serious: Yes (Death, Hospitalization, Other)
  Sender: FDA-Public Use
  Company Number: US-PFIZER INC-2010090569

PATIENT
  Sex: Female

DRUGS (2)
  1. NEURONTIN [Suspect]
     Indication: RESTLESS LEGS SYNDROME
     Dosage: UNK
  2. ZOLOFT [Suspect]
     Dosage: UNK

REACTIONS (63)
  - MYOCARDIAL INFARCTION [None]
  - VENTRICULAR TACHYCARDIA [None]
  - HAEMATEMESIS [None]
  - CONSTIPATION [None]
  - FATIGUE [None]
  - DERMATITIS [None]
  - UPPER RESPIRATORY TRACT INFECTION [None]
  - SYSTEMIC LUPUS ERYTHEMATOSUS [None]
  - SYNCOPE [None]
  - CORONARY ARTERY DISEASE [None]
  - FALL [None]
  - CARDIOMEGALY [None]
  - CARDIAC FAILURE CONGESTIVE [None]
  - HYPOGLYCAEMIC COMA [None]
  - AORTIC ANEURYSM REPAIR [None]
  - PULMONARY OEDEMA [None]
  - BACK PAIN [None]
  - PHARYNGITIS [None]
  - NEUROPATHY PERIPHERAL [None]
  - INFESTATION [None]
  - CONFUSIONAL STATE [None]
  - ANAEMIA [None]
  - HEART VALVE INCOMPETENCE [None]
  - VISION BLURRED [None]
  - HALLUCINATION, VISUAL [None]
  - MENTAL STATUS CHANGES [None]
  - VENTRICULAR ARRHYTHMIA [None]
  - STOMATITIS [None]
  - TEMPOROMANDIBULAR JOINT SYNDROME [None]
  - ANXIETY [None]
  - VERTIGO [None]
  - RENAL FAILURE CHRONIC [None]
  - SUICIDAL IDEATION [None]
  - LEFT VENTRICULAR HYPERTROPHY [None]
  - HYPOTHYROIDISM [None]
  - ENCEPHALOPATHY [None]
  - DEMENTIA [None]
  - INFLUENZA [None]
  - DIZZINESS [None]
  - FUNGAL INFECTION [None]
  - DEPRESSION [None]
  - GINGIVITIS [None]
  - GASTROOESOPHAGEAL REFLUX DISEASE [None]
  - CONJUNCTIVITIS ALLERGIC [None]
  - INTERVERTEBRAL DISC DISORDER [None]
  - LUNG DISORDER [None]
  - HEAD INJURY [None]
  - LOSS OF CONTROL OF LEGS [None]
  - HYPERTENSION [None]
  - OSTEOARTHRITIS [None]
  - NAUSEA [None]
  - HAEMATOMA [None]
  - MYOFASCIAL PAIN SYNDROME [None]
  - CYSTITIS [None]
  - EAR PAIN [None]
  - THROMBOCYTOPENIA [None]
  - CARDIOMYOPATHY [None]
  - MUSCULAR WEAKNESS [None]
  - ARTHRITIS [None]
  - DRUG INEFFECTIVE [None]
  - BRONCHITIS [None]
  - HYPOAESTHESIA [None]
  - DISORIENTATION [None]
